FAERS Safety Report 15607087 (Version 1)
Quarter: 2018Q4

REPORT INFORMATION
  Report Type: Spontaneous
  Country: US (occurrence: US)
  Receive Date: 20181106
  Receipt Date: 20181106
  Transmission Date: 20190205
  Serious: No
  Sender: FDA-Public Use
  Company Number: None

PATIENT
  Age: 55 Year
  Sex: Male

DRUGS (1)
  1. DAPTOMYCIN. [Suspect]
     Active Substance: DAPTOMYCIN
     Indication: BACTERAEMIA
     Route: 042
     Dates: start: 20181018, end: 20181029

REACTIONS (3)
  - Blood creatine increased [None]
  - Blood creatine phosphokinase increased [None]
  - Blood urea increased [None]

NARRATIVE: CASE EVENT DATE: 20181025
